FAERS Safety Report 17518749 (Version 1)
Quarter: 2020Q1

REPORT INFORMATION
  Report Type: Spontaneous
  Country: US (occurrence: US)
  Receive Date: 20200309
  Receipt Date: 20200309
  Transmission Date: 20200409
  Serious: No
  Sender: FDA-Public Use
  Company Number: US-OSMOTICA_PHARMACEUTICAL_US_LLC-POI0573202000168

PATIENT
  Age: 88 Year
  Sex: Female

DRUGS (2)
  1. OSMOLEX ER [Suspect]
     Active Substance: AMANTADINE
     Indication: PRODUCT USED FOR UNKNOWN INDICATION
     Dates: start: 20191205, end: 20191229
  2. OSMOLEX ER [Suspect]
     Active Substance: AMANTADINE
     Dates: start: 20191230, end: 20200130

REACTIONS (3)
  - Fall [Recovered/Resolved]
  - Dizziness [Recovered/Resolved]
  - Rash pruritic [Unknown]

NARRATIVE: CASE EVENT DATE: 20200124
